FAERS Safety Report 4851670-5 (Version None)
Quarter: 2005Q4

REPORT INFORMATION
  Report Type: 
  Country: None (occurrence: None)
  Receive Date: 20051213
  Receipt Date: 20051128
  Transmission Date: 20060501
  Serious: Yes (Other)
  Sender: FDA-Public Use
  Company Number: PHBS2005JP17732

PATIENT
  Age: 24 Year
  Sex: Female

DRUGS (1)
  1. TEGRETOL [Suspect]
     Route: 048
     Dates: start: 19820601, end: 19921001

REACTIONS (1)
  - HYPOGAMMAGLOBULINAEMIA [None]
